FAERS Safety Report 7864920-8 (Version None)
Quarter: 2011Q4

REPORT INFORMATION
  Report Type: 
  Country: None (occurrence: None)
  Receive Date: 20111028
  Receipt Date: 20100910
  Transmission Date: 20120403
  Serious: No
  Sender: FDA-Public Use
  Company Number: US-GLAXOSMITHKLINE-A0881701A

PATIENT
  Age: 81 Year
  Sex: Female

DRUGS (2)
  1. ALBUTEROL [Suspect]
     Indication: PRODUCT USED FOR UNKNOWN INDICATION
     Route: 065
  2. ADVAIR DISKUS 100/50 [Suspect]
     Indication: PRODUCT USED FOR UNKNOWN INDICATION
     Route: 065

REACTIONS (4)
  - PAIN IN EXTREMITY [None]
  - BALANCE DISORDER [None]
  - FALL [None]
  - MUSCLE SPASMS [None]
